FAERS Safety Report 6500110-9 (Version None)
Quarter: 2009Q4

REPORT INFORMATION
  Report Type: 
  Country: None (occurrence: None)
  Receive Date: 20091214
  Receipt Date: 20091214
  Transmission Date: 20100525
  Serious: Yes (Disabling)
  Sender: FDA-Public Use
  Company Number: None

PATIENT
  Sex: Female
  Weight: 54.4316 kg

DRUGS (2)
  1. PLAVIX [Suspect]
     Indication: ANTICOAGULANT THERAPY
     Dosage: ONE A DAY
     Dates: start: 20090618, end: 20090801
  2. EFFIENT [Suspect]
     Indication: ANTICOAGULANT THERAPY
     Dosage: ONE A DAY
     Dates: start: 20090803, end: 20091115

REACTIONS (4)
  - ASTHENIA [None]
  - MOVEMENT DISORDER [None]
  - MUSCLE SPASMS [None]
  - PAIN IN EXTREMITY [None]
